FAERS Safety Report 22310313 (Version 8)
Quarter: 2023Q4

REPORT INFORMATION
  Report Type: Spontaneous
  Country: US (occurrence: US)
  Receive Date: 20230511
  Receipt Date: 20231221
  Transmission Date: 20240110
  Serious: Yes (Hospitalization, Other)
  Sender: FDA-Public Use
  Company Number: US-KARYOPHARM-2023KPT001147

PATIENT

DRUGS (8)
  1. XPOVIO [Suspect]
     Active Substance: SELINEXOR
     Indication: Plasma cell myeloma
     Dosage: 60 MG, WEEKLY
     Route: 048
     Dates: start: 20230417, end: 202310
  2. XPOVIO [Suspect]
     Active Substance: SELINEXOR
     Dosage: 40 MG, WEEKLY
     Route: 048
     Dates: start: 202310
  3. COMPAZINE [Concomitant]
     Active Substance: PROCHLORPERAZINE MALEATE
  4. DEXAMETHASONE [Concomitant]
     Active Substance: DEXAMETHASONE
  5. POMALYST [Concomitant]
     Active Substance: POMALIDOMIDE
  6. MAGNESIUM CITRATE [Concomitant]
     Active Substance: MAGNESIUM CITRATE
     Indication: Blood magnesium abnormal
     Dosage: 3 DOSAGE FORM, BID
     Route: 048
  7. AMIODARONE [Concomitant]
     Active Substance: AMIODARONE
  8. ELIQUIS [Concomitant]
     Active Substance: APIXABAN
     Dosage: UNK
     Dates: end: 2023

REACTIONS (12)
  - Mass [Unknown]
  - Blood glucose abnormal [Unknown]
  - Blood phosphorus decreased [Unknown]
  - Fall [Unknown]
  - Abdominal pain upper [Recovered/Resolved]
  - Blood glucose increased [Unknown]
  - Blood magnesium decreased [Unknown]
  - Blood calcium decreased [Unknown]
  - Diabetic neuropathy [Unknown]
  - Depressed mood [Unknown]
  - Dizziness [Unknown]
  - Product dose omission issue [Unknown]

NARRATIVE: CASE EVENT DATE: 20230101
